FAERS Safety Report 7620153-1 (Version None)
Quarter: 2011Q3

REPORT INFORMATION
  Report Type: 
  Country: None (occurrence: None)
  Receive Date: 20110719
  Receipt Date: 20110711
  Transmission Date: 20111222
  Serious: Yes (Other)
  Sender: FDA-Public Use
  Company Number: CN-JNJFOC-20110705422

PATIENT
  Age: 33 Year
  Sex: Female
  Weight: 50 kg

DRUGS (3)
  1. SPORANOX [Suspect]
     Indication: TINEA INFECTION
     Route: 048
     Dates: start: 20101213, end: 20101220
  2. ALL OTHER THERAPEUTIC PRODUCT [Concomitant]
     Indication: GENITAL DISORDER FEMALE
     Route: 065
  3. CEPHRADINE [Concomitant]
     Indication: GENITAL DISORDER FEMALE
     Route: 065

REACTIONS (1)
  - CHOLECYSTITIS [None]
